FAERS Safety Report 12683590 (Version 2)
Quarter: 2016Q3

REPORT INFORMATION
  Report Type: Report from Study
  Country: BR (occurrence: BR)
  Receive Date: 20160825
  Receipt Date: 20160927
  Transmission Date: 20161109
  Serious: Yes (Other)
  Sender: FDA-Public Use
  Company Number: BR-JNJFOC-20160820170

PATIENT
  Age: 65 Year
  Sex: Female
  Weight: 52 kg

DRUGS (3)
  1. SIMPONI [Suspect]
     Active Substance: GOLIMUMAB
     Indication: RHEUMATOID ARTHRITIS
     Route: 058
     Dates: start: 20160720
  2. ARAVA [Concomitant]
     Active Substance: LEFLUNOMIDE
     Route: 065
  3. PREDNISOLONE. [Concomitant]
     Active Substance: PREDNISOLONE
     Route: 065

REACTIONS (9)
  - Hepatic cyst [Unknown]
  - Vaginal discharge [Unknown]
  - Menopausal symptoms [Unknown]
  - Renal cyst [Unknown]
  - Pain [Unknown]
  - Urinary tract infection [Unknown]
  - Breast cyst [Unknown]
  - Hernia [Unknown]
  - Inflammation [Unknown]

NARRATIVE: CASE EVENT DATE: 20160822
